FAERS Safety Report 10177715 (Version 1)
Quarter: 2014Q2

REPORT INFORMATION
  Report Type: Spontaneous
  Country: US (occurrence: US)
  Receive Date: 20140516
  Receipt Date: 20140516
  Transmission Date: 20141212
  Serious: No
  Sender: FDA-Public Use
  Company Number: US-SANOFI-AVENTIS-2013SA025563

PATIENT
  Age: 50 Year
  Sex: Female

DRUGS (2)
  1. APIDRA [Suspect]
  2. HUMALOG [Concomitant]

REACTIONS (3)
  - Injection site infection [Recovering/Resolving]
  - Skin irritation [Unknown]
  - Skin mass [Unknown]
